FAERS Safety Report 7290899-6 (Version None)
Quarter: 2011Q1

REPORT INFORMATION
  Report Type: 
  Country: None (occurrence: None)
  Receive Date: 20110214
  Receipt Date: 20110203
  Transmission Date: 20110831
  Serious: Yes (Hospitalization, Other)
  Sender: FDA-Public Use
  Company Number: US-ASTRAZENECA-2010SE57552

PATIENT
  Age: 79 Year
  Sex: Female
  Weight: 51.3 kg

DRUGS (18)
  1. PRILOSEC [Suspect]
     Route: 048
     Dates: start: 20060101
  2. PILOCARPINE [Concomitant]
     Route: 047
  3. FERROUS FUMARATE [Concomitant]
     Route: 048
  4. PRILOSEC OTC [Suspect]
     Dosage: DAILY
     Route: 048
     Dates: start: 20060101, end: 20060101
  5. LATANOPROST [Concomitant]
     Route: 047
  6. NORVASC [Concomitant]
     Route: 048
  7. IRON SUCROSE [Concomitant]
     Dosage: 20 MG/ML 1 INTRAVENOUS ONCE A WEEK
     Route: 042
  8. HYDROCHLOROTHIAZIDE [Concomitant]
  9. LUTEIN [Concomitant]
     Route: 048
  10. EPOGEN [Concomitant]
     Dosage: UNKONWN DOSE EVERY MONTH
  11. PRILOSEC [Suspect]
     Dosage: OMEPRAZOLE 20 MG ONCE A DAY
     Route: 048
  12. NEXIUM [Suspect]
     Indication: DYSPEPSIA
     Route: 048
     Dates: start: 20060101, end: 20060101
  13. LEVOTHYROXINE SODIUM [Concomitant]
     Route: 048
  14. LIPITOR [Concomitant]
     Route: 048
  15. NEXIUM [Suspect]
     Indication: GASTROOESOPHAGEAL REFLUX DISEASE
     Route: 048
     Dates: start: 20060101, end: 20060101
  16. BUMEX [Concomitant]
     Route: 048
  17. TIMOLOL [Concomitant]
     Dosage: GTT  TWO TIMES A DAY BOTH EYES
     Route: 047
  18. ALLOPURINOL [Concomitant]
     Route: 048

REACTIONS (14)
  - CORONARY ARTERY THROMBOSIS [None]
  - LOBAR PNEUMONIA [None]
  - TRICUSPID VALVE INCOMPETENCE [None]
  - PERICARDIAL EFFUSION [None]
  - CORONARY ARTERY BYPASS [None]
  - SINUS TACHYCARDIA [None]
  - BLOOD UREA NITROGEN/CREATININE RATIO INCREASED [None]
  - LEFT VENTRICULAR HYPERTROPHY [None]
  - NEPHROGENIC ANAEMIA [None]
  - FLUID OVERLOAD [None]
  - INJURY ASSOCIATED WITH DEVICE [None]
  - PROCEDURAL HYPOTENSION [None]
  - PRURITUS GENERALISED [None]
  - DRUG INEFFECTIVE [None]
